FAERS Safety Report 10557322 (Version 1)
Quarter: 2014Q4

REPORT INFORMATION
  Report Type: Spontaneous
  Country: GB (occurrence: GB)
  Receive Date: 20141031
  Receipt Date: 20141031
  Transmission Date: 20150529
  Serious: Yes (Disabling, Other)
  Sender: FDA-Public Use
  Company Number: GB-TEVA-517327ISR

PATIENT
  Age: 78 Year
  Sex: Male
  Weight: 69.9 kg

DRUGS (12)
  1. AMANTADINE HYDROCHLORIDE. [Interacting]
     Active Substance: AMANTADINE HYDROCHLORIDE
     Dates: start: 20140619
  2. PARACETAMOL [Concomitant]
     Active Substance: ACETAMINOPHEN
     Dates: start: 20140711, end: 20141007
  3. TRIMETHOPRIM. [Suspect]
     Active Substance: TRIMETHOPRIM
     Indication: URINARY TRACT INFECTION
     Dates: start: 20140818, end: 20141003
  4. RASAGILINE [Concomitant]
     Active Substance: RASAGILINE
     Dates: start: 20100215
  5. ROTIGOTINE [Concomitant]
     Active Substance: ROTIGOTINE
     Dates: start: 20100215
  6. LAXIDO [Concomitant]
     Active Substance: POLYETHYLENE GLYCOL 3350\POTASSIUM CHLORIDE\SODIUM BICARBONATE\SODIUM CHLORIDE
     Dates: start: 20140713, end: 20140907
  7. LEVODOPA [Concomitant]
     Active Substance: LEVODOPA
     Dates: start: 20100215
  8. STALEVO [Concomitant]
     Active Substance: CARBIDOPA\ENTACAPONE\LEVODOPA
     Dates: start: 20140711
  9. CEFALEXIN [Concomitant]
     Active Substance: CEPHALEXIN
     Dates: start: 20140823, end: 20140830
  10. CLONAZEPAM. [Concomitant]
     Active Substance: CLONAZEPAM
     Dates: start: 20140830, end: 20140927
  11. AMITRIPTYLINE HYDROCHLORIDE. [Concomitant]
     Active Substance: AMITRIPTYLINE HYDROCHLORIDE
     Dates: start: 20100215
  12. EXELON [Concomitant]
     Active Substance: RIVASTIGMINE TARTRATE
     Dates: start: 20140618

REACTIONS (2)
  - Confusional state [Recovered/Resolved]
  - Drug interaction [Unknown]

NARRATIVE: CASE EVENT DATE: 20141004
